FAERS Safety Report 5545272-5 (Version None)
Quarter: 2007Q4

REPORT INFORMATION
  Report Type: 
  Country: None (occurrence: None)
  Receive Date: 20071211
  Receipt Date: 20071203
  Transmission Date: 20080405
  Serious: Yes (Other)
  Sender: FDA-Public Use
  Company Number: PHBS2007BR20340

PATIENT
  Age: 47 Year
  Sex: Female

DRUGS (2)
  1. CODATEN [Suspect]
     Indication: BACK PAIN
     Dosage: UNK, Q8H
     Route: 048
     Dates: start: 20071130, end: 20071202
  2. PIROXICAM [Concomitant]
     Indication: BACK PAIN
     Dosage: 20 MG, QD
     Route: 048
     Dates: start: 20071128

REACTIONS (2)
  - ABDOMINAL DISTENSION [None]
  - HAEMATEMESIS [None]
